FAERS Safety Report 8410886-1 (Version None)
Quarter: 2012Q2

REPORT INFORMATION
  Report Type: 
  Country: None (occurrence: None)
  Receive Date: 20120605
  Receipt Date: 20120601
  Transmission Date: 20120825
  Serious: Yes (Hospitalization)
  Sender: FDA-Public Use
  Company Number: PHHY2012DE047035

PATIENT
  Age: 50 Year
  Sex: Female
  Weight: 53 kg

DRUGS (1)
  1. GILENYA [Suspect]
     Indication: MULTIPLE SCLEROSIS
     Dosage: 0.5 MG, QD
     Route: 048
     Dates: start: 20120316, end: 20120511

REACTIONS (3)
  - DYSPNOEA [None]
  - VISUAL IMPAIRMENT [None]
  - EPILEPSY [None]
